FAERS Safety Report 21654493 (Version 2)
Quarter: 2022Q4

REPORT INFORMATION
  Report Type: Other
  Country: CN (occurrence: None)
  Receive Date: 20221129
  Receipt Date: 20221226
  Transmission Date: 20230112
  Serious: Yes (Hospitalization)
  Sender: FDA-Public Use
  Company Number: CN-ROCHE-3115124

PATIENT
  Age: 81 Year
  Sex: Male
  Weight: 80 kg

DRUGS (1)
  1. AVASTIN [Suspect]
     Active Substance: BEVACIZUMAB
     Indication: Non-small cell lung cancer
     Route: 041
     Dates: start: 20170727, end: 20221123

REACTIONS (5)
  - Renal disorder [Unknown]
  - Protein total abnormal [Recovered/Resolved]
  - Blood glucose abnormal [Unknown]
  - Troponin increased [Recovered/Resolved]
  - Cardiac discomfort [Unknown]
